FAERS Safety Report 5629282-5 (Version None)
Quarter: 2008Q1

REPORT INFORMATION
  Report Type: 
  Country: None (occurrence: None)
  Receive Date: 20080217
  Receipt Date: 20080212
  Transmission Date: 20080703
  Serious: Yes (Hospitalization, Disabling)
  Sender: FDA-Public Use
  Company Number: US-BAXTER-2008BH000734

PATIENT
  Age: 55 Year
  Sex: Female
  Weight: 57 kg

DRUGS (11)
  1. HEPARIN SODIUM [Suspect]
     Indication: PROPHYLAXIS
     Route: 033
     Dates: start: 20070401
  2. HEPARIN SODIUM [Suspect]
     Route: 033
     Dates: start: 20070401
  3. RENAGEL [Concomitant]
     Indication: BLOOD PHOSPHORUS
     Route: 048
  4. PRENAVITE [Concomitant]
     Indication: VITAMIN SUPPLEMENTATION
     Dosage: DOSE UNIT:UNKNOWN
     Route: 048
  5. PROTONIX [Concomitant]
     Route: 048
  6. COREG [Concomitant]
     Indication: HYPERTENSION
     Route: 048
  7. AMLODIPINE [Concomitant]
     Indication: HYPERTENSION
     Route: 048
  8. CADVET [Concomitant]
     Indication: BLOOD CHOLESTEROL
     Route: 048
  9. HECTOROL [Concomitant]
     Indication: MINERAL SUPPLEMENTATION
     Route: 048
  10. DIOVAN [Concomitant]
     Indication: HYPERTENSION
     Route: 048
  11. RIFAMPIN [Concomitant]
     Indication: INFECTION
     Route: 065
     Dates: start: 20070201

REACTIONS (10)
  - ABASIA [None]
  - ABDOMINAL PAIN UPPER [None]
  - BALANCE DISORDER [None]
  - DIZZINESS [None]
  - HYPOTENSION [None]
  - INSOMNIA [None]
  - NAUSEA [None]
  - RETCHING [None]
  - VOMITING [None]
  - WEIGHT DECREASED [None]
